FAERS Safety Report 4953040-8 (Version None)
Quarter: 2006Q1

REPORT INFORMATION
  Report Type: 
  Country: None (occurrence: None)
  Receive Date: 20060320
  Receipt Date: 20060306
  Transmission Date: 20060701
  Serious: Yes (Other)
  Sender: FDA-Public Use
  Company Number: 2006033556

PATIENT
  Sex: Male

DRUGS (1)
  1. DETROL LA [Suspect]
     Indication: POLLAKIURIA

REACTIONS (3)
  - DRUG INEFFECTIVE [None]
  - PROSTATIC DISORDER [None]
  - TREATMENT NONCOMPLIANCE [None]
